FAERS Safety Report 17425215 (Version 1)
Quarter: 2020Q1

REPORT INFORMATION
  Report Type: Spontaneous
  Country: DE (occurrence: DE)
  Receive Date: 20200217
  Receipt Date: 20200217
  Transmission Date: 20200409
  Serious: Yes (Hospitalization)
  Sender: FDA-Public Use
  Company Number: DE-SA-2020SA035851

PATIENT
  Age: 26 Year
  Sex: Female
  Weight: 86 kg

DRUGS (3)
  1. LEMTRADA [Suspect]
     Active Substance: ALEMTUZUMAB
     Dosage: 12 MG
     Route: 065
  2. ELEVIT [MINERALS NOS;VITAMINS NOS] [Concomitant]
     Indication: PREGNANCY
     Dosage: UNK UNK, QD
     Dates: start: 201911
  3. LEMTRADA [Suspect]
     Active Substance: ALEMTUZUMAB
     Dosage: 12.0 MG
     Route: 065
     Dates: start: 20150402

REACTIONS (19)
  - Fluid intake reduced [Unknown]
  - Micturition disorder [Unknown]
  - Haemoglobin decreased [Unknown]
  - Red blood cell count decreased [Recovered/Resolved]
  - Vomiting [Recovered/Resolved]
  - Diarrhoea [Recovered/Resolved]
  - Pyrexia [Recovered/Resolved]
  - Blood sodium decreased [Unknown]
  - C-reactive protein increased [Unknown]
  - Feeding disorder [Unknown]
  - Influenza [Recovered/Resolved]
  - Headache [Recovered/Resolved]
  - Nausea [Recovered/Resolved]
  - Cough [Recovered/Resolved]
  - Abdominal pain [Unknown]
  - Platelet count decreased [Recovering/Resolving]
  - Haematocrit decreased [Unknown]
  - Pain in extremity [Recovered/Resolved]
  - General physical health deterioration [Recovered/Resolved]

NARRATIVE: CASE EVENT DATE: 202001
